FAERS Safety Report 22118338 (Version 2)
Quarter: 2023Q2

REPORT INFORMATION
  Report Type: Spontaneous
  Country: EG (occurrence: EG)
  Receive Date: 20230321
  Receipt Date: 20230403
  Transmission Date: 20230722
  Serious: Yes (Hospitalization, Other)
  Sender: FDA-Public Use
  Company Number: EG-NOVOPROD-1038245

PATIENT
  Sex: Male
  Weight: 70 kg

DRUGS (2)
  1. INSULIN HUMAN [Suspect]
     Active Substance: INSULIN HUMAN
     Indication: Type 2 diabetes mellitus
     Dosage: 25U-15U
     Dates: start: 2014, end: 20230305
  2. CONCOR 5 PLUS [Concomitant]
     Indication: Hypertension
     Dosage: 1TAB/DAY
     Dates: start: 2016, end: 20230311

REACTIONS (1)
  - Ligament operation [Recovered/Resolved]

NARRATIVE: CASE EVENT DATE: 20210101
